FAERS Safety Report 6498259-2 (Version None)
Quarter: 2009Q4

REPORT INFORMATION
  Report Type: 
  Country: None (occurrence: None)
  Receive Date: 20091215
  Receipt Date: 20091209
  Transmission Date: 20100525
  Serious: Yes (Life-Threatening, Hospitalization)
  Sender: FDA-Public Use
  Company Number: B0609086A

PATIENT
  Sex: Male
  Weight: 55 kg

DRUGS (6)
  1. ARIXTRA [Suspect]
     Indication: THROMBOSIS PROPHYLAXIS
     Dosage: 1.5MG PER DAY
     Route: 058
     Dates: start: 20091118, end: 20091124
  2. SULPERAZON [Concomitant]
     Indication: INFECTION PROPHYLAXIS
     Dosage: 2G PER DAY
     Route: 042
     Dates: start: 20091117, end: 20091120
  3. LORCAM [Concomitant]
     Indication: ANALGESIC THERAPY
     Dosage: 8MG PER DAY
     Route: 048
     Dates: start: 20091118
  4. EMPYNASE P [Concomitant]
     Indication: SWELLING
     Dosage: 36000IU PER DAY
     Route: 048
     Dates: start: 20091118
  5. ISALON [Concomitant]
     Indication: PROPHYLAXIS
     Dosage: 200MG PER DAY
     Route: 048
  6. VOLTAREN [Concomitant]
     Indication: ANALGESIC THERAPY
     Dosage: 50MG PER DAY
     Route: 054

REACTIONS (3)
  - CONJUNCTIVITIS [None]
  - HAEMOGLOBIN DECREASED [None]
  - POST PROCEDURAL HAEMORRHAGE [None]
